FAERS Safety Report 8350971-6 (Version None)
Quarter: 2012Q2

REPORT INFORMATION
  Report Type: 
  Country: None (occurrence: None)
  Receive Date: 20120510
  Receipt Date: 20120501
  Transmission Date: 20120825
  Serious: Yes (Death)
  Sender: FDA-Public Use
  Company Number: US-CELGENEUS-163-21660-12041155

PATIENT
  Sex: Male

DRUGS (9)
  1. FENTANYL CITRATE [Concomitant]
     Indication: PAIN
     Route: 061
  2. LEXAPRO [Concomitant]
     Indication: DEPRESSION
     Route: 048
  3. NYSTATIN [Concomitant]
     Route: 048
  4. ANTIBIOTICS [Concomitant]
     Route: 047
  5. MIDODRINE HYDROCHLORIDE [Concomitant]
     Indication: ORTHOSTATIC HYPOTENSION
     Route: 048
  6. ADVAIR DISKUS 100/50 [Concomitant]
     Route: 047
  7. OXYCODONE HCL [Concomitant]
     Indication: PAIN
     Route: 048
  8. EYE DROPS [Concomitant]
     Route: 047
  9. ABRAXANE [Suspect]
     Dosage: 300 MILLIGRAM
     Route: 041
     Dates: start: 20120216

REACTIONS (2)
  - HEAD AND NECK CANCER [None]
  - PNEUMONIA ASPIRATION [None]
